FAERS Safety Report 9849428 (Version 1)
Quarter: 2014Q1

REPORT INFORMATION
  Report Type: Spontaneous
  Country: DE (occurrence: DE)
  Receive Date: 20140128
  Receipt Date: 20140128
  Transmission Date: 20141002
  Serious: Yes (Hospitalization)
  Sender: FDA-Public Use
  Company Number: DE-B.I. PHARMACEUTICALS,INC./RIDGEFIELD-2014-BI-02724DE

PATIENT
  Age: 71 Year
  Sex: Female
  Weight: 55 kg

DRUGS (5)
  1. PRADAXA [Suspect]
     Indication: ARRHYTHMIA
     Dosage: 300 MG
  2. AMIODARON [Suspect]
     Indication: ARRHYTHMIA
     Dosage: 1 ANZ
  3. METOPROLOL [Concomitant]
     Indication: HYPERTENSION
     Dosage: DAILY DOSE: 95 1X0.5
  4. RAMIPRIL 5 [Concomitant]
     Indication: HYPERTENSION
     Dosage: 2 ANZ
  5. MOXONIDIN 0.2 [Concomitant]
     Indication: HYPERTENSION
     Dosage: 2 ANZ

REACTIONS (2)
  - International normalised ratio increased [Unknown]
  - Atrial thrombosis [Unknown]
